FAERS Safety Report 10983019 (Version 1)
Quarter: 2015Q1

REPORT INFORMATION
  Report Type: Spontaneous
  Country: NL (occurrence: None)
  Receive Date: 20150302
  Receipt Date: 20150302
  Transmission Date: 20150721
  Serious: Yes (Other)
  Sender: FDA-Public Use
  Company Number: 2014SYM00175

PATIENT
  Age: 53 Year
  Sex: Male
  Weight: 85 kg

DRUGS (7)
  1. PANTOPRAZOLE SODIUM SESQUIHYDRATE [Concomitant]
     Active Substance: PANTOPRAZOLE SODIUM
  2. ACETYLSALICYLZUUR (ACETYLSALICYLIC ACID) [Concomitant]
  3. METOPROLOL SUCCINATE (METOPROLOL SUCCINATE) [Concomitant]
     Active Substance: METOPROLOL SUCCINATE
  4. ACEON [Suspect]
     Active Substance: PERINDOPRIL ERBUMINE
     Indication: PERCUTANEOUS CORONARY INTERVENTION
     Route: 048
     Dates: start: 20141018, end: 20141018
  5. ATORVASTATIN CALCIUM (ATORVASTATIN CALCIUM) [Concomitant]
     Active Substance: ATORVASTATIN CALCIUM
  6. ACEON [Suspect]
     Active Substance: PERINDOPRIL ERBUMINE
     Indication: OFF LABEL USE
     Route: 048
     Dates: start: 20141018, end: 20141018
  7. TICAGRELOR (TICAGRELOR) [Concomitant]
     Active Substance: TICAGRELOR

REACTIONS (1)
  - Angioedema [None]

NARRATIVE: CASE EVENT DATE: 20141020
